FAERS Safety Report 11031966 (Version 1)
Quarter: 2015Q2

REPORT INFORMATION
  Report Type: Spontaneous
  Country: AU (occurrence: AU)
  Receive Date: 20150415
  Receipt Date: 20150415
  Transmission Date: 20150821
  Serious: Yes (Death, Other)
  Sender: FDA-Public Use
  Company Number: AU-BAXTER-2015BAX019211

PATIENT
  Age: 4 Year
  Sex: Male

DRUGS (28)
  1. KIOVIG [Suspect]
     Active Substance: HUMAN IMMUNOGLOBULIN G
     Indication: OFF LABEL USE
  2. HYDROXYUREA. [Suspect]
     Active Substance: HYDROXYUREA
     Indication: THALASSAEMIA BETA
  3. DESFERRIOXAMINE [Suspect]
     Active Substance: DEFEROXAMINE MESYLATE
     Indication: STEM CELL TRANSPLANT
  4. BUSULFAN [Suspect]
     Active Substance: BUSULFAN
     Indication: OFF LABEL USE
  5. ANTI-THYMOCYTE GLOBULIN (RABBIT) NOS [Suspect]
     Active Substance: LAPINE T-LYMPHOCYTE IMMUNE GLOBULIN
     Indication: STEM CELL TRANSPLANT
     Route: 065
  6. KIOVIG [Suspect]
     Active Substance: HUMAN IMMUNOGLOBULIN G
     Indication: HAEMOLYTIC ANAEMIA
     Route: 042
  7. ENDOXAN CYCLOPHOSPHAMIDE 2G (AS MONOHYDRATE) POWDER FOR INJECTION VIAL [Suspect]
     Active Substance: CYCLOPHOSPHAMIDE
     Indication: THALASSAEMIA BETA
  8. ENDOXAN CYCLOPHOSPHAMIDE 2G (AS MONOHYDRATE) POWDER FOR INJECTION VIAL [Suspect]
     Active Substance: CYCLOPHOSPHAMIDE
     Indication: OFF LABEL USE
  9. HYDROXYUREA. [Suspect]
     Active Substance: HYDROXYUREA
     Indication: OFF LABEL USE
  10. AZATHIOPRINE. [Suspect]
     Active Substance: AZATHIOPRINE
     Indication: THALASSAEMIA BETA
  11. THIOTEPA. [Suspect]
     Active Substance: THIOTEPA
     Indication: OFF LABEL USE
  12. AZATHIOPRINE. [Suspect]
     Active Substance: AZATHIOPRINE
     Indication: OFF LABEL USE
  13. DESFERRIOXAMINE [Suspect]
     Active Substance: DEFEROXAMINE MESYLATE
     Indication: THALASSAEMIA BETA
     Route: 065
  14. BUSULFAN [Suspect]
     Active Substance: BUSULFAN
     Indication: THALASSAEMIA BETA
  15. THIOTEPA. [Suspect]
     Active Substance: THIOTEPA
     Indication: STEM CELL TRANSPLANT
     Route: 065
  16. RITUXIMAB [Suspect]
     Active Substance: RITUXIMAB
     Indication: HAEMOLYTIC ANAEMIA
     Route: 065
  17. HYDROXYUREA. [Suspect]
     Active Substance: HYDROXYUREA
     Indication: STEM CELL TRANSPLANT
     Route: 065
  18. PREDNISOLONE. [Suspect]
     Active Substance: PREDNISOLONE
     Indication: HAEMOLYTIC ANAEMIA
     Route: 065
  19. AZATHIOPRINE. [Suspect]
     Active Substance: AZATHIOPRINE
     Indication: STEM CELL TRANSPLANT
     Route: 065
  20. BUSULFAN [Suspect]
     Active Substance: BUSULFAN
     Indication: STEM CELL TRANSPLANT
     Route: 065
  21. FLUDARABINE [Suspect]
     Active Substance: FLUDARABINE PHOSPHATE
     Indication: OFF LABEL USE
  22. FLUDARABINE [Suspect]
     Active Substance: FLUDARABINE PHOSPHATE
     Indication: THALASSAEMIA BETA
     Route: 065
  23. THIOTEPA. [Suspect]
     Active Substance: THIOTEPA
     Indication: THALASSAEMIA BETA
  24. ANTI-THYMOCYTE GLOBULIN (RABBIT) NOS [Suspect]
     Active Substance: LAPINE T-LYMPHOCYTE IMMUNE GLOBULIN
     Indication: THALASSAEMIA BETA
     Route: 065
  25. RITUXIMAB [Suspect]
     Active Substance: RITUXIMAB
     Indication: OFF LABEL USE
  26. FLUDARABINE [Suspect]
     Active Substance: FLUDARABINE PHOSPHATE
     Indication: STEM CELL TRANSPLANT
     Route: 065
  27. ANTI-THYMOCYTE GLOBULIN (RABBIT) NOS [Suspect]
     Active Substance: LAPINE T-LYMPHOCYTE IMMUNE GLOBULIN
     Indication: OFF LABEL USE
  28. ENDOXAN CYCLOPHOSPHAMIDE 2G (AS MONOHYDRATE) POWDER FOR INJECTION VIAL [Suspect]
     Active Substance: CYCLOPHOSPHAMIDE
     Indication: STEM CELL TRANSPLANT
     Route: 065

REACTIONS (7)
  - Death [Fatal]
  - Acute hepatic failure [Unknown]
  - Respiratory syncytial virus infection [Unknown]
  - No therapeutic response [Not Recovered/Not Resolved]
  - Venoocclusive disease [Unknown]
  - Multi-organ failure [Recovered/Resolved]
  - Intravascular haemolysis [Unknown]
